FAERS Safety Report 18006710 (Version 1)
Quarter: 2020Q3

REPORT INFORMATION
  Report Type: Spontaneous
  Country: CA (occurrence: CA)
  Receive Date: 20200710
  Receipt Date: 20200710
  Transmission Date: 20201103
  Serious: Yes (Other)
  Sender: FDA-Public Use
  Company Number: CA-PFIZER INC-2020262565

PATIENT
  Age: 9 Year
  Sex: Female

DRUGS (1)
  1. IBUPROFEN. [Suspect]
     Active Substance: IBUPROFEN
     Indication: PYREXIA
     Dosage: 200 MG, 1X/DAY
     Route: 048

REACTIONS (4)
  - Vomiting [Unknown]
  - Seizure [Unknown]
  - Product use issue [Unknown]
  - Loss of consciousness [Unknown]
